FAERS Safety Report 8784310 (Version 2)
Quarter: 2012Q4

REPORT INFORMATION
  Report Type: 
  Country: CA (occurrence: CA)
  Receive Date: 20120913
  Receipt Date: 20121012
  Transmission Date: 20130627
  Serious: Yes (Hospitalization, Other)
  Sender: FDA-Public Use
  Company Number: CA-VERTEX PHARMACEUTICAL INC.-AE-2012-011495

PATIENT
  Age: 53 Year
  Sex: Female
  Weight: 36 kg

DRUGS (4)
  1. INCIVEK [Suspect]
     Indication: HEPATITIS C
     Dosage: 750 mg
     Route: 048
     Dates: start: 20120531, end: 20120823
  2. PEGASYS [Concomitant]
     Indication: HEPATITIS C
     Dosage: 180 UNK, UNK
     Dates: start: 20120531
  3. RIBAVIRIN [Concomitant]
     Indication: HEPATITIS C
     Dates: start: 20120531
  4. RIBAVIRIN [Concomitant]
     Route: 048
     Dates: start: 20120628

REACTIONS (4)
  - Escherichia sepsis [Recovered/Resolved]
  - Anaemia [Recovered/Resolved]
  - Pyrexia [Recovered/Resolved]
  - Dizziness [Recovered/Resolved]
